FAERS Safety Report 16171821 (Version 1)
Quarter: 2019Q2

REPORT INFORMATION
  Report Type: Report from Study
  Country: AU (occurrence: AU)
  Receive Date: 20190408
  Receipt Date: 20190408
  Transmission Date: 20190711
  Serious: Yes (Hospitalization, Other)
  Sender: FDA-Public Use
  Company Number: AU-ELI_LILLY_AND_COMPANY-AU201904002152

PATIENT
  Age: 52 Year
  Sex: Female

DRUGS (16)
  1. FUROSEMIDE. [Concomitant]
     Active Substance: FUROSEMIDE
     Dosage: 40 MG, UNKNOWN
     Route: 065
  2. OLANZAPINE. [Suspect]
     Active Substance: OLANZAPINE
     Indication: PRODUCT USED FOR UNKNOWN INDICATION
     Dosage: 10 MG, UNKNOWN
     Route: 065
  3. ARIPIPRAZOLE. [Concomitant]
     Active Substance: ARIPIPRAZOLE
     Dosage: 15 UNK
  4. ASENAPINE. [Suspect]
     Active Substance: ASENAPINE
     Dosage: 15 MG, UNKNOWN
     Route: 065
     Dates: start: 20140530, end: 20140608
  5. LORAZEPAM. [Suspect]
     Active Substance: LORAZEPAM
     Indication: PRODUCT USED FOR UNKNOWN INDICATION
     Dosage: 300 MG, UNKNOWN
     Route: 065
     Dates: start: 201406
  6. PALIPERIDONE. [Suspect]
     Active Substance: PALIPERIDONE
     Indication: PRODUCT USED FOR UNKNOWN INDICATION
     Dosage: UNK, UNKNOWN
     Route: 065
     Dates: start: 201406
  7. ARIPIPRAZOLE. [Concomitant]
     Active Substance: ARIPIPRAZOLE
     Dosage: 10 MG, UNKNOWN
     Route: 065
  8. CLOZARIL [Suspect]
     Active Substance: CLOZAPINE
     Indication: PRODUCT USED FOR UNKNOWN INDICATION
     Dosage: 300 MG, UNKNOWN
     Route: 065
  9. CARVEDILOL. [Concomitant]
     Active Substance: CARVEDILOL
     Dosage: 25 MG, DAILY
  10. LITHIUM. [Concomitant]
     Active Substance: LITHIUM
     Dosage: 750 MG, DAILY
     Route: 065
  11. PERINDOPRIL [Concomitant]
     Active Substance: PERINDOPRIL
     Dosage: 5 MG, UNKNOWN
  12. ASENAPINE. [Suspect]
     Active Substance: ASENAPINE
     Indication: PRODUCT USED FOR UNKNOWN INDICATION
     Dosage: 10 MG, UNKNOWN
     Route: 065
     Dates: start: 20140520, end: 20140529
  13. CLOZARIL [Suspect]
     Active Substance: CLOZAPINE
     Dosage: 400 MG, UNKNOWN
     Route: 065
     Dates: start: 20130201, end: 20140520
  14. SPIRONOLACTONE. [Concomitant]
     Active Substance: SPIRONOLACTONE
     Indication: PRODUCT USED FOR UNKNOWN INDICATION
     Dosage: 25 MG, UNKNOWN
     Route: 065
  15. QUETIAPINE. [Suspect]
     Active Substance: QUETIAPINE
     Indication: PRODUCT USED FOR UNKNOWN INDICATION
     Dosage: 50 MG, UNKNOWN
     Route: 065
     Dates: start: 20140613
  16. VALPROATE [Concomitant]
     Active Substance: VALPROIC ACID
     Dosage: 1000 MG, DAILY

REACTIONS (29)
  - Sedation [Unknown]
  - Myocarditis [Unknown]
  - Bundle branch block right [Unknown]
  - Insomnia [Unknown]
  - Weight decreased [Unknown]
  - QRS axis abnormal [Unknown]
  - Nausea [Unknown]
  - Joint swelling [Unknown]
  - Electrocardiogram T wave abnormal [Unknown]
  - Pollakiuria [Unknown]
  - Bundle branch block left [Unknown]
  - Vomiting [Unknown]
  - Hallucination, auditory [Unknown]
  - Sinus tachycardia [Unknown]
  - Electrocardiogram T wave inversion [Unknown]
  - Rhinorrhoea [Unknown]
  - Electrocardiogram QT prolonged [Unknown]
  - Anxiety [Unknown]
  - Mental impairment [Unknown]
  - Myocardial infarction [Unknown]
  - Left ventricular dysfunction [Recovered/Resolved]
  - Drug ineffective [Unknown]
  - Myocardial ischaemia [Unknown]
  - Atrial flutter [Unknown]
  - Salivary hypersecretion [Unknown]
  - Delusion [Unknown]
  - Diarrhoea [Unknown]
  - Congestive cardiomyopathy [Unknown]
  - Constipation [Unknown]

NARRATIVE: CASE EVENT DATE: 2013
